FAERS Safety Report 23568915 (Version 1)
Quarter: 2024Q1

REPORT INFORMATION
  Report Type: Report from Study
  Country: US (occurrence: US)
  Receive Date: 20240227
  Receipt Date: 20240227
  Transmission Date: 20240410
  Serious: No
  Sender: FDA-Public Use
  Company Number: US-ORG100014127-2023000752

PATIENT
  Age: 34 Year
  Sex: Female

DRUGS (10)
  1. METOPIRONE [Suspect]
     Active Substance: METYRAPONE
     Indication: Cushing^s syndrome
     Dosage: 250 MG: 03 CAPSULES (750 MG) BY MOUTH EVERY 6 HOURS
     Route: 048
     Dates: start: 20230526, end: 2023
  2. CAPECITABINE [Concomitant]
     Active Substance: CAPECITABINE
     Indication: Product used for unknown indication
  3. HUMALOG [Concomitant]
     Active Substance: INSULIN LISPRO
     Indication: Product used for unknown indication
  4. KETOCONAZOLE TAB 200MG [Concomitant]
     Indication: Product used for unknown indication
  5. LANTUS INJ 100/ML [Concomitant]
     Indication: Product used for unknown indication
  6. LOSARTAN POT TAB 25MG [Concomitant]
     Indication: Product used for unknown indication
  7. PANTOPRAZOLE TAB 40MG [Concomitant]
     Indication: Product used for unknown indication
  8. POTASSIUM TAB 99MG [Concomitant]
     Indication: Product used for unknown indication
  9. SPIRONOLACT TAB 25MG [Concomitant]
     Indication: Product used for unknown indication
  10. SULFAMETHOX POW [Concomitant]
     Indication: Product used for unknown indication

REACTIONS (1)
  - Off label use [Recovered/Resolved]

NARRATIVE: CASE EVENT DATE: 20230526
